FAERS Safety Report 8362034 (Version 2)
Quarter: 2015Q2

REPORT INFORMATION
  Report Type: Report from Study
  Country: US (occurrence: US)
  Receive Date: 20120130
  Receipt Date: 20150618
  Transmission Date: 20150821
  Serious: Yes (Death, Hospitalization)
  Sender: FDA-Public Use
  Company Number: US-ROCHE-1033557

PATIENT
  Sex: Male

DRUGS (8)
  1. ZOFRAN [Concomitant]
     Active Substance: ONDANSETRON HYDROCHLORIDE
     Route: 065
  2. ATROPINE [Concomitant]
     Active Substance: ATROPINE
     Route: 042
  3. IRINOTECAN [Concomitant]
     Active Substance: IRINOTECAN
     Route: 065
  4. AVASTIN [Suspect]
     Active Substance: BEVACIZUMAB
     Indication: BRAIN NEOPLASM MALIGNANT
     Route: 042
     Dates: start: 20070713
  5. TARCEVA [Suspect]
     Active Substance: ERLOTINIB HYDROCHLORIDE
     Indication: BRAIN NEOPLASM MALIGNANT
     Route: 048
  6. ANZEMET [Concomitant]
     Active Substance: DOLASETRON MESYLATE
     Route: 065
  7. DEXAMETHASONE. [Concomitant]
     Active Substance: DEXAMETHASONE
     Route: 042
  8. ALOXI [Concomitant]
     Active Substance: PALONOSETRON HYDROCHLORIDE
     Route: 042

REACTIONS (6)
  - Large intestine perforation [Unknown]
  - Dysphonia [Unknown]
  - Death [Fatal]
  - Peroneal nerve palsy [Unknown]
  - Balance disorder [Unknown]
  - Off label use [Unknown]
